FAERS Safety Report 4438577-2 (Version None)
Quarter: 2004Q3

REPORT INFORMATION
  Report Type: 
  Country: None (occurrence: None)
  Receive Date: 20040831
  Receipt Date: 20040823
  Transmission Date: 20050211
  Serious: Yes (Other)
  Sender: FDA-Public Use
  Company Number: US-JNJFOC-20040704246

PATIENT
  Sex: Male
  Weight: 74.84 kg

DRUGS (21)
  1. TOPAMAX [Suspect]
     Route: 049
  2. TOPAMAX [Suspect]
     Route: 049
  3. TOPAMAX [Suspect]
     Indication: MOOD SWINGS
     Dosage: (25 MG IN THE MORNING AND 50 MG AT NIGHT)
     Route: 049
  4. TOPAMAX [Suspect]
     Route: 049
  5. HALOPERIDOL [Concomitant]
     Indication: DRUG USE FOR UNKNOWN INDICATION
     Route: 065
  6. CLONIDINE HCL [Concomitant]
  7. COGENTIN [Concomitant]
  8. LISINOPRIL [Concomitant]
  9. PROPRANOLOL LA [Concomitant]
  10. CLONAZEPAM [Concomitant]
  11. MULTI-VITAMINS [Concomitant]
  12. MULTI-VITAMINS [Concomitant]
  13. MULTI-VITAMINS [Concomitant]
  14. MULTI-VITAMINS [Concomitant]
  15. MULTI-VITAMINS [Concomitant]
  16. MULTI-VITAMINS [Concomitant]
  17. MULTI-VITAMINS [Concomitant]
  18. MULTI-VITAMINS [Concomitant]
  19. MINERAL TAB [Concomitant]
  20. RANITIDINE [Concomitant]
  21. PENTOXIFYLLINE [Concomitant]

REACTIONS (5)
  - AMMONIA INCREASED [None]
  - BALANCE DISORDER [None]
  - FALL [None]
  - HYPERAMMONAEMIA [None]
  - UNEXPECTED THERAPEUTIC DRUG EFFECT [None]
